FAERS Safety Report 9518541 (Version 5)
Quarter: 2014Q1

REPORT INFORMATION
  Report Type: Spontaneous
  Country: US (occurrence: None)
  Receive Date: 20130910
  Receipt Date: 20140220
  Transmission Date: 20141002
  Serious: Yes (Other)
  Sender: FDA-Public Use
  Company Number: ADR-2013-01580

PATIENT
  Age: 59 Year
  Sex: Female
  Weight: 57.61 kg

DRUGS (2)
  1. LIORESAL [Suspect]
     Indication: MUSCLE SPASTICITY
  2. BUPIVACAINE [Suspect]
     Dosage: 7.985 PER DAY

REACTIONS (16)
  - Depressed level of consciousness [None]
  - Somnolence [None]
  - Overdose [None]
  - Crying [None]
  - Pain [None]
  - Muscle spasticity [None]
  - Condition aggravated [None]
  - Drug withdrawal syndrome [None]
  - Device malfunction [None]
  - Underdose [None]
  - Implant site scar [None]
  - Drug effect decreased [None]
  - Adhesion [None]
  - Device power source issue [None]
  - Device leakage [None]
  - Incorrect dose administered by device [None]
